FAERS Safety Report 4821397-4 (Version None)
Quarter: 2005Q4

REPORT INFORMATION
  Report Type: 
  Country: None (occurrence: None)
  Receive Date: 20051104
  Receipt Date: 20051104
  Transmission Date: 20060501
  Serious: No
  Sender: FDA-Public Use
  Company Number: None

PATIENT
  Age: 66 Year
  Sex: Male

DRUGS (2)
  1. MUCOMYST [Suspect]
     Dosage: SOLUTION
  2. MUCINEX [Suspect]
     Dosage: TABLETS, EXTENDED RELEASE

REACTIONS (4)
  - DRUG DISPENSING ERROR [None]
  - DRUG DOSE OMISSION [None]
  - MEDICATION ERROR [None]
  - WRONG DRUG ADMINISTERED [None]
